FAERS Safety Report 21903660 (Version 8)
Quarter: 2024Q1

REPORT INFORMATION
  Report Type: Spontaneous
  Country: US (occurrence: US)
  Receive Date: 20230124
  Receipt Date: 20240320
  Transmission Date: 20240409
  Serious: Yes (Other)
  Sender: FDA-Public Use
  Company Number: US-PFIZER INC-202300026554

PATIENT
  Age: 68 Year
  Sex: Female
  Weight: 74.84 kg

DRUGS (11)
  1. LORBRENA [Suspect]
     Active Substance: LORLATINIB
     Indication: Non-small cell lung cancer
     Dosage: 100 MG, 1X/DAY
     Dates: start: 20220701
  2. LORBRENA [Suspect]
     Active Substance: LORLATINIB
     Dosage: 100 MG, ALTERNATE DAY
     Dates: start: 202208
  3. LORBRENA [Suspect]
     Active Substance: LORLATINIB
     Dosage: 50 MG, ALTERNATE DAY
  4. LORBRENA [Suspect]
     Active Substance: LORLATINIB
     Dosage: ALTERNATE DAY
     Dates: start: 20230413
  5. LORBRENA [Suspect]
     Active Substance: LORLATINIB
     Dosage: TAKES 3, 25 MG TABLETS, ONCE A DAY
     Dates: start: 202306
  6. LORBRENA [Suspect]
     Active Substance: LORLATINIB
     Dosage: TAKES 3- 25MG TABLETS FOR TOTAL OF 75MG ONCE A DAY SWALLOWED WITH WATER
     Route: 048
     Dates: start: 202305
  7. ERGOCALCIFEROL [Concomitant]
     Active Substance: ERGOCALCIFEROL
     Indication: Vitamin D decreased
     Dosage: UNK
  8. MSM [Concomitant]
     Active Substance: DIMETHYL SULFONE
     Indication: Inflammation
     Dosage: UNK
  9. ASPIRIN [Concomitant]
     Active Substance: ASPIRIN
     Indication: Arthritis
     Dosage: UNK
  10. ACETAMINOPHEN [Concomitant]
     Active Substance: ACETAMINOPHEN
     Indication: Arthritis
     Dosage: UNK
  11. TYLENOL [Concomitant]
     Active Substance: ACETAMINOPHEN
     Indication: Arthritis
     Dosage: UNK

REACTIONS (25)
  - Neuropathy peripheral [Recovering/Resolving]
  - Joint stiffness [Unknown]
  - Musculoskeletal stiffness [Not Recovered/Not Resolved]
  - Nodule [Not Recovered/Not Resolved]
  - Joint swelling [Not Recovered/Not Resolved]
  - Peripheral swelling [Unknown]
  - Arthritis [Unknown]
  - Electric shock sensation [Unknown]
  - Inflammation [Recovering/Resolving]
  - Balance disorder [Not Recovered/Not Resolved]
  - Hypoaesthesia [Not Recovered/Not Resolved]
  - Paraesthesia [Not Recovered/Not Resolved]
  - Gait disturbance [Not Recovered/Not Resolved]
  - Head discomfort [Not Recovered/Not Resolved]
  - Pain in extremity [Not Recovered/Not Resolved]
  - Muscle disorder [Not Recovered/Not Resolved]
  - Trigger finger [Recovering/Resolving]
  - Dry skin [Not Recovered/Not Resolved]
  - Arthralgia [Unknown]
  - Limb discomfort [Unknown]
  - Myalgia [Not Recovered/Not Resolved]
  - Arthralgia [Not Recovered/Not Resolved]
  - Malaise [Unknown]
  - Lymphoedema [Unknown]
  - Off label use [Unknown]

NARRATIVE: CASE EVENT DATE: 20220101
